FAERS Safety Report 10009387 (Version 1)
Quarter: 2014Q1

REPORT INFORMATION
  Report Type: Spontaneous
  Country: US (occurrence: US)
  Receive Date: 20140313
  Receipt Date: 20140313
  Transmission Date: 20141002
  Serious: Yes (Other)
  Sender: FDA-Public Use
  Company Number: CHPA2014US003652

PATIENT
  Sex: 0

DRUGS (1)
  1. EXCEDRIN UNKNOWN [Suspect]
     Dosage: UNK
     Route: 048

REACTIONS (3)
  - Neoplasm malignant [Unknown]
  - Liver disorder [Unknown]
  - Headache [Unknown]
